FAERS Safety Report 24351169 (Version 2)
Quarter: 2024Q4

REPORT INFORMATION
  Report Type: Spontaneous
  Country: US (occurrence: US)
  Receive Date: 20240923
  Receipt Date: 20241004
  Transmission Date: 20250114
  Serious: Yes (Other)
  Sender: BAYER
  Company Number: US-BAYER-2024A133731

PATIENT
  Age: 25 Year
  Sex: Male

DRUGS (3)
  1. KOVALTRY [Suspect]
     Active Substance: ANTIHEMOPHILIC FACTOR, HUMAN RECOMBINANT
     Dosage: 3390 U, PRN
     Route: 041
  2. KOVALTRY [Suspect]
     Active Substance: ANTIHEMOPHILIC FACTOR, HUMAN RECOMBINANT
     Dosage: 3 DF
  3. KOVALTRY [Suspect]
     Active Substance: ANTIHEMOPHILIC FACTOR, HUMAN RECOMBINANT
     Dosage: KOVALTRY 1000/ INFUSE 3390 UNITS
     Route: 042

REACTIONS (3)
  - Ligament sprain [None]
  - Haemarthrosis [None]
  - Haemorrhage [None]

NARRATIVE: CASE EVENT DATE: 20240823
